FAERS Safety Report 9159606 (Version 1)
Quarter: 2013Q1

REPORT INFORMATION
  Report Type: Spontaneous
  Country: US (occurrence: None)
  Receive Date: 20130220
  Receipt Date: 20130220
  Transmission Date: 20140127
  Serious: Yes (Other)
  Sender: FDA-Public Use
  Company Number: 2013-000412

PATIENT
  Sex: 0

DRUGS (2)
  1. ASACOL HD (MESALAZINE) MODIFIED-RELEASE TABLET, 800 MG [Suspect]
     Route: 048
  2. ASACOL (MESALAZINE) MODIFIED-RELEASE TABLET, 400 MG [Suspect]
     Route: 048

REACTIONS (1)
  - Pancytopenia [None]
